FAERS Safety Report 25823419 (Version 2)
Quarter: 2025Q4

REPORT INFORMATION
  Report Type: Spontaneous
  Country: CN (occurrence: CN)
  Receive Date: 20250919
  Receipt Date: 20251001
  Transmission Date: 20260118
  Serious: Yes (Hospitalization, Other)
  Sender: ACCORD
  Company Number: CN-Accord-505408

PATIENT
  Age: 28 Year
  Sex: Female

DRUGS (3)
  1. QUETIAPINE FUMARATE [Suspect]
     Active Substance: QUETIAPINE FUMARATE
     Indication: Bipolar disorder
     Dosage: AT NIGHT
  2. MEGESTROL ACETATE [Suspect]
     Active Substance: MEGESTROL ACETATE
     Indication: Endometrial hyperplasia with cellular atypia
  3. MEGESTROL ACETATE [Suspect]
     Active Substance: MEGESTROL ACETATE
     Indication: Endometrial hyperplasia with cellular atypia

REACTIONS (3)
  - Secondary adrenocortical insufficiency [Recovered/Resolved]
  - Hypothalamic pituitary adrenal axis suppression [Recovered/Resolved]
  - Mineralocorticoid deficiency [Recovered/Resolved]
